FAERS Safety Report 7212376-0 (Version None)
Quarter: 2010Q4

REPORT INFORMATION
  Report Type: 
  Country: None (occurrence: None)
  Receive Date: 20101217
  Receipt Date: 20101214
  Transmission Date: 20110411
  Serious: Yes (Hospitalization)
  Sender: FDA-Public Use
  Company Number: 021679

PATIENT
  Sex: Male
  Weight: 93 kg

DRUGS (1)
  1. CERTOLIZUMAB PEGOL (CERTOLIZUMAB PEGOL) [Suspect]
     Indication: CROHN'S DISEASE
     Dosage: SEE IMAGE: SUBCUTANEOUS
     Route: 058
     Dates: start: 20041117, end: 20101019

REACTIONS (5)
  - ABDOMINAL MASS [None]
  - ABSCESS [None]
  - DECREASED APPETITE [None]
  - ENTERITIS [None]
  - FISTULA [None]
